FAERS Safety Report 23223095 (Version 2)
Quarter: 2024Q1

REPORT INFORMATION
  Report Type: Spontaneous
  Country: FR (occurrence: FR)
  Receive Date: 20231123
  Receipt Date: 20240213
  Transmission Date: 20240410
  Serious: Yes (Hospitalization)
  Sender: FDA-Public Use
  Company Number: FR-TEVA-2023-FR-2947531

PATIENT
  Age: 45 Year
  Sex: Female

DRUGS (8)
  1. PANTOPRAZOLE [Suspect]
     Active Substance: PANTOPRAZOLE
     Indication: Product used for unknown indication
     Route: 065
  2. MEROPENEM [Suspect]
     Active Substance: MEROPENEM
     Indication: Enterobacter infection
     Dosage: DOSAGE TEXT: STARTED ON 26 NOVEMBER.
     Route: 065
  3. VANCOMYCIN [Suspect]
     Active Substance: VANCOMYCIN
     Indication: Enterobacter infection
     Dosage: DOSAGE TEXT: TREATMENT STARTS ON 26 NOVEMBER AND ENDS ON 29 DECEMBER.
     Route: 065
  4. FERROUS SULFATE [Suspect]
     Active Substance: FERROUS SULFATE
     Indication: Product used for unknown indication
     Route: 048
  5. FOSFOMYCIN [Suspect]
     Active Substance: FOSFOMYCIN
     Indication: Enterobacter infection
     Dosage: DOSAGE TEXT: INITIAL DOSE NOT STATED
     Route: 065
  6. FOSFOMYCIN [Suspect]
     Active Substance: FOSFOMYCIN
     Indication: Enterobacter infection
     Dosage: DOSAGE TEXT: 4G EVERY 12HOURS
     Route: 065
  7. Sodium-feredetate [Concomitant]
     Indication: Product used for unknown indication
     Route: 065
  8. LANSOPRAZOLE [Concomitant]
     Active Substance: LANSOPRAZOLE
     Indication: Product used for unknown indication
     Route: 065

REACTIONS (4)
  - Drug reaction with eosinophilia and systemic symptoms [Not Recovered/Not Resolved]
  - Drug ineffective [Unknown]
  - Vancomycin infusion reaction [Unknown]
  - Agranulocytosis [Not Recovered/Not Resolved]
